FAERS Safety Report 8425763-X (Version None)
Quarter: 2012Q2

REPORT INFORMATION
  Report Type: 
  Country: None (occurrence: None)
  Receive Date: 20120611
  Receipt Date: 20120605
  Transmission Date: 20120825
  Serious: Yes (Hospitalization, Other)
  Sender: FDA-Public Use
  Company Number: PHHY2012MX049272

PATIENT
  Sex: Female

DRUGS (6)
  1. LIPITOR [Concomitant]
     Dosage: ONCE A DAY
  2. MICARDIS [Concomitant]
     Dosage: ONCE A DAY
  3. ADALAT [Concomitant]
  4. ZOLEDRONOC ACID [Suspect]
     Indication: OSTEOPOROSIS
     Dosage: 5 MG/100 ML ONCE A YEAR
     Route: 042
     Dates: start: 20110101
  5. LEVOTIROXINA [Concomitant]
     Indication: HYPOTHYROIDISM
     Dosage: ONCE A DAY
  6. ALENDRONATE SODIUM [Concomitant]
     Dosage: ONCE A DAY

REACTIONS (6)
  - SPINAL DISORDER [None]
  - HYPERTENSION [None]
  - MUSCULOSKELETAL PAIN [None]
  - ABASIA [None]
  - WEIGHT DECREASED [None]
  - MUSCULOSKELETAL DISCOMFORT [None]
